FAERS Safety Report 14688376 (Version 4)
Quarter: 2018Q4

REPORT INFORMATION
  Report Type: Spontaneous
  Country: JP (occurrence: JP)
  Receive Date: 20180328
  Receipt Date: 20181227
  Transmission Date: 20190204
  Serious: Yes (Other)
  Sender: FDA-Public Use
  Company Number: JP-ROCHE-2094995

PATIENT
  Age: 68 Year
  Sex: Male
  Weight: 58 kg

DRUGS (2)
  1. ACTEMRA [Suspect]
     Active Substance: TOCILIZUMAB
     Indication: CASTLEMAN^S DISEASE
     Route: 041
     Dates: start: 20140417, end: 20171219
  2. ACTEMRA [Suspect]
     Active Substance: TOCILIZUMAB
     Route: 041
     Dates: start: 20171228, end: 20180404

REACTIONS (3)
  - Drug ineffective [Unknown]
  - Renal disorder [Not Recovered/Not Resolved]
  - Hodgkin^s disease [Unknown]

NARRATIVE: CASE EVENT DATE: 20180104
